FAERS Safety Report 6423297-5 (Version None)
Quarter: 2009Q4

REPORT INFORMATION
  Report Type: 
  Country: None (occurrence: None)
  Receive Date: 20091020
  Receipt Date: 20090918
  Transmission Date: 20100525
  Serious: No
  Sender: FDA-Public Use
  Company Number: 382450

PATIENT
  Age: 60 Year
  Sex: Male

DRUGS (3)
  1. ROCURONIUM BROMIDE [Suspect]
     Indication: ANAESTHESIA
     Dosage: 50 MG, 1 DAY, INTRAVENOUS
     Route: 042
     Dates: start: 20090915, end: 20090915
  2. PROPOFOL [Concomitant]
  3. SUFENTANIL CITRATE [Concomitant]

REACTIONS (1)
  - ANAPHYLACTOID REACTION [None]
